FAERS Safety Report 4852981-X (Version None)
Quarter: 2005Q4

REPORT INFORMATION
  Report Type: 
  Country: None (occurrence: None)
  Receive Date: 20051212
  Receipt Date: 20051201
  Transmission Date: 20060501
  Serious: Yes (Other)
  Sender: FDA-Public Use
  Company Number: 2005-06-0091

PATIENT
  Age: 51 Year
  Sex: Male
  Weight: 85 kg

DRUGS (5)
  1. PEG-INTRON [Suspect]
     Indication: HEPATITIS C
     Dosage: 100-50 MCG*QW SUBCUTANEO
     Route: 058
     Dates: start: 20050418
  2. REBETOL [Suspect]
     Indication: HEPATITIS C
     Dosage: 800 MG ORAL
     Route: 048
     Dates: start: 20050418
  3. AMARYL [Concomitant]
  4. GASTER [Concomitant]
  5. LOXONIN [Concomitant]

REACTIONS (6)
  - AUTOIMMUNE DISORDER [None]
  - EAR PAIN [None]
  - FACIAL PALSY [None]
  - PANCREATITIS [None]
  - SKIN TIGHTNESS [None]
  - TINNITUS [None]
